FAERS Safety Report 9981971 (Version 1)
Quarter: 2014Q1

REPORT INFORMATION
  Report Type: Report from Study
  Country: US (occurrence: US)
  Receive Date: 20140307
  Receipt Date: 20140307
  Transmission Date: 20141002
  Serious: No
  Sender: FDA-Public Use
  Company Number: US-ABBVIE-13P-163-1181740-00

PATIENT
  Age: 33 Year
  Sex: Female

DRUGS (10)
  1. HUMIRA [Suspect]
     Indication: PSORIATIC ARTHROPATHY
     Dates: start: 20131031
  2. PREDNISONE [Concomitant]
     Indication: ARTHRALGIA
  3. PREDNISONE [Concomitant]
     Indication: INFLAMMATION
  4. METHOTREXATE [Concomitant]
     Indication: PSORIATIC ARTHROPATHY
  5. GABAPENTIN [Concomitant]
     Indication: NERVOUSNESS
  6. DICYCLOMINE [Concomitant]
     Indication: IRRITABLE BOWEL SYNDROME
  7. FOLIC ACID [Concomitant]
     Indication: VITAMIN SUPPLEMENTATION
  8. VIT D [Concomitant]
     Indication: VITAMIN SUPPLEMENTATION
     Dosage: 5000 IU
  9. NABUMETONE [Concomitant]
     Indication: ANTIINFLAMMATORY THERAPY
  10. NABUMETONE [Concomitant]
     Indication: ARTHRALGIA

REACTIONS (1)
  - Stomatitis [Not Recovered/Not Resolved]
